FAERS Safety Report 24332200 (Version 2)
Quarter: 2024Q3

REPORT INFORMATION
  Report Type: Spontaneous
  Country: ES (occurrence: ES)
  Receive Date: 20240918
  Receipt Date: 20240927
  Transmission Date: 20241016
  Serious: Yes (Hospitalization, Other)
  Sender: ALCON
  Company Number: ES-ALCON LABORATORIES-ALC2024ES004168

PATIENT

DRUGS (17)
  1. EPINEPHRINE [Suspect]
     Active Substance: EPINEPHRINE
     Indication: Cataract operation
     Dosage: UNK
     Route: 065
  2. BSS [Suspect]
     Active Substance: CALCIUM CHLORIDE\MAGNESIUM CHLORIDE\POTASSIUM CHLORIDE\SODIUM ACETATE\SODIUM CHLORIDE\SODIUM CITRATE
     Indication: Cataract operation
     Dosage: UNK
     Route: 065
  3. CHONDROITIN SULFATE SODIUM NOS\HYALURONATE SODIUM [Suspect]
     Active Substance: CHONDROITIN SULFATE SODIUM NOS\HYALURONATE SODIUM
     Indication: Cataract operation
     Dosage: UNK
     Route: 065
  4. LIDOCAINE HYDROCHLORIDE [Suspect]
     Active Substance: LIDOCAINE HYDROCHLORIDE
     Indication: Postoperative care
     Dosage: UNK
     Route: 065
  5. POVIDONE-IODINE [Suspect]
     Active Substance: POVIDONE-IODINE
     Indication: Postoperative care
     Dosage: UNK
     Route: 065
  6. SODIUM CHLORIDE [Suspect]
     Active Substance: SODIUM CHLORIDE
     Indication: Cataract operation
     Dosage: 5 ML
     Route: 065
  7. BENOXINATE HYDROCHLORIDE\TETRACAINE HYDROCHLORIDE [Concomitant]
     Active Substance: BENOXINATE HYDROCHLORIDE\TETRACAINE HYDROCHLORIDE
     Indication: Preoperative care
     Dosage: UNK
     Route: 065
  8. TROPICAMIDE [Concomitant]
     Active Substance: TROPICAMIDE
     Indication: Preoperative care
     Dosage: UNK
     Route: 065
  9. POVIDONE-IODINE [Concomitant]
     Active Substance: POVIDONE-IODINE
     Indication: Surgery
     Dosage: UNK
     Route: 065
  10. LIDOCAINE HYDROCHLORIDE [Concomitant]
     Active Substance: LIDOCAINE HYDROCHLORIDE
     Indication: Cataract operation
     Dosage: 20 MG/ML INJECTABLE 200 MG/LO ML 2%
     Route: 065
  11. LIDOCAINE HYDROCHLORIDE [Concomitant]
     Active Substance: LIDOCAINE HYDROCHLORIDE
     Indication: Preoperative care
     Dosage: 50 ML/MG INJECTABLE 500 MG/LO ML 5%
     Route: 065
  12. MAXIDEX [Concomitant]
     Active Substance: DEXAMETHASONE
     Indication: Postoperative care
     Dosage: UNK
     Route: 065
  13. PHENYLEPHRINE HYDROCHLORIDE [Concomitant]
     Active Substance: PHENYLEPHRINE HYDROCHLORIDE
     Indication: Cataract operation
     Dosage: UNK
     Route: 065
  14. PHENYLEPHRINE HYDROCHLORIDE [Concomitant]
     Active Substance: PHENYLEPHRINE HYDROCHLORIDE
     Indication: Cataract operation
     Dosage: UNK
     Route: 065
  15. POVIDONE-IODINE [Concomitant]
     Active Substance: POVIDONE-IODINE
     Indication: Preoperative care
     Dosage: 2 ML
     Route: 065
  16. CEFUROXIME SODIUM [Concomitant]
     Active Substance: CEFUROXIME SODIUM
     Indication: Cataract operation
     Dosage: UNK
     Route: 065
  17. VIGAMOX [Concomitant]
     Active Substance: MOXIFLOXACIN HYDROCHLORIDE
     Indication: Postoperative care
     Dosage: UNK
     Route: 065

REACTIONS (1)
  - Candida endophthalmitis [Not Recovered/Not Resolved]

NARRATIVE: CASE EVENT DATE: 20240816
